FAERS Safety Report 8237746-3 (Version None)
Quarter: 2012Q1

REPORT INFORMATION
  Report Type: 
  Country: None (occurrence: None)
  Receive Date: 20120323
  Receipt Date: 20120315
  Transmission Date: 20120608
  Serious: Yes (Other)
  Sender: FDA-Public Use
  Company Number: 2012-026582

PATIENT
  Age: 71 Year
  Sex: Female
  Weight: 86 kg

DRUGS (1)
  1. DOMEBORO POWDER PACKETS (ALUMINUM SULFATE + CALCIUM ACETATE) CUTANEOUS [Suspect]
     Dosage: 1 DF, QD, TOPICAL
     Route: 061
     Dates: start: 20120314

REACTIONS (1)
  - NO ADVERSE EVENT [None]
